FAERS Safety Report 10613877 (Version 3)
Quarter: 2014Q4

REPORT INFORMATION
  Report Type: Spontaneous
  Country: CZ (occurrence: CZ)
  Receive Date: 20141128
  Receipt Date: 20141217
  Transmission Date: 20150529
  Serious: Yes (Hospitalization)
  Sender: FDA-Public Use
  Company Number: CZ-SA-2014SA161033

PATIENT
  Age: 73 Year
  Sex: Female
  Weight: 75.8 kg

DRUGS (8)
  1. SIMGAL [Concomitant]
     Dosage: 20 MG 0-0-1
  2. EUTHYROX [Concomitant]
     Active Substance: LEVOTHYROXINE SODIUM
     Dosage: 1-0-0
  3. ALL OTHER THERAPEUTIC PRODUCTS [Concomitant]
     Active Substance: UNSPECIFIED INGREDIENT
  4. GLIMEPIRIDE. [Concomitant]
     Active Substance: GLIMEPIRIDE
     Dosage: 1-0-0
  5. DIURETICS [Concomitant]
     Active Substance: UNSPECIFIED INGREDIENT
  6. HMG COA REDUCTASE INHIBITORS [Concomitant]
     Active Substance: UNSPECIFIED INGREDIENT
  7. PRESTARIUM [Concomitant]
     Active Substance: PERINDOPRIL
     Dosage: 5/1,25MG TBL 1-0-0,
  8. LANTUS [Suspect]
     Active Substance: INSULIN GLARGINE
     Route: 065
     Dates: start: 20131212

REACTIONS (3)
  - Lumbar vertebral fracture [Recovered/Resolved with Sequelae]
  - Fall [Unknown]
  - Pain [Not Recovered/Not Resolved]

NARRATIVE: CASE EVENT DATE: 20140427
